FAERS Safety Report 6603751-3 (Version None)
Quarter: 2010Q1

REPORT INFORMATION
  Report Type: 
  Country: None (occurrence: None)
  Receive Date: 20100226
  Receipt Date: 20090203
  Transmission Date: 20100710
  Serious: Yes (Other)
  Sender: FDA-Public Use
  Company Number: A0763953A

PATIENT
  Sex: Female
  Weight: 90.9 kg

DRUGS (2)
  1. LAMICTAL CD [Suspect]
     Indication: BIPOLAR DISORDER
     Dosage: 25MG PER DAY
     Route: 048
     Dates: start: 20090106, end: 20090111
  2. UNKNOWN [Concomitant]

REACTIONS (2)
  - RASH ERYTHEMATOUS [None]
  - STEVENS-JOHNSON SYNDROME [None]
